FAERS Safety Report 18568458 (Version 1)
Quarter: 2020Q4

REPORT INFORMATION
  Report Type: Other
  Country: FR (occurrence: FR)
  Receive Date: 20201202
  Receipt Date: 20201202
  Transmission Date: 20210114
  Serious: Yes (Hospitalization)
  Sender: FDA-Public Use
  Company Number: FR-ROCHE-2722880

PATIENT

DRUGS (6)
  1. ATEZOLIZUMAB. [Suspect]
     Active Substance: ATEZOLIZUMAB
     Indication: COLORECTAL CANCER
     Route: 065
  2. NIVOLUMAB [Suspect]
     Active Substance: NIVOLUMAB
     Indication: TRANSITIONAL CELL CARCINOMA
     Route: 065
  3. IPILIMUMAB [Suspect]
     Active Substance: IPILIMUMAB
     Indication: CERVIX CARCINOMA
     Route: 065
  4. PEMBROLIZUMAB. [Suspect]
     Active Substance: PEMBROLIZUMAB
     Indication: MALIGNANT MELANOMA
     Route: 065
  5. IPILIMUMAB [Suspect]
     Active Substance: IPILIMUMAB
     Indication: NASOPHARYNGEAL CANCER
  6. DURVALUMAB. [Suspect]
     Active Substance: DURVALUMAB
     Indication: BREAST CANCER
     Route: 065

REACTIONS (11)
  - Infusion related hypersensitivity reaction [Unknown]
  - Nephritis [Unknown]
  - Encephalitis [Unknown]
  - Pneumonitis [Unknown]
  - Myocarditis [Unknown]
  - Pericarditis [Unknown]
  - Diabetes mellitus [Unknown]
  - Hepatitis [Unknown]
  - Hypophysitis [Unknown]
  - Colitis [Unknown]
  - Meningitis [Unknown]
